FAERS Safety Report 4974989-6 (Version None)
Quarter: 2006Q2

REPORT INFORMATION
  Report Type: 
  Country: None (occurrence: None)
  Receive Date: 20060414
  Receipt Date: 20060414
  Transmission Date: 20061013
  Serious: Yes (Hospitalization, Other)
  Sender: FDA-Public Use
  Company Number: None

PATIENT
  Age: 52 Year
  Sex: Female
  Weight: 52.1637 kg

DRUGS (2)
  1. GABAPENTIN [Suspect]
     Indication: CHRONIC FATIGUE SYNDROME
     Dosage: 800 MG 2 TIME DAILY PO
     Route: 048
     Dates: start: 20060306, end: 20060410
  2. GABAPENTIN [Suspect]
     Indication: INTRACRANIAL INJURY
     Dosage: 800 MG 2 TIME DAILY PO
     Route: 048
     Dates: start: 20060306, end: 20060410

REACTIONS (6)
  - DEPRESSION [None]
  - GENERAL PHYSICAL HEALTH DETERIORATION [None]
  - MALAISE [None]
  - PHARMACEUTICAL PRODUCT COMPLAINT [None]
  - RESPIRATORY DISORDER [None]
  - SUICIDAL IDEATION [None]
